FAERS Safety Report 4320669-X (Version None)
Quarter: 2004Q1

REPORT INFORMATION
  Report Type: 
  Country: None (occurrence: None)
  Receive Date: 20040318
  Receipt Date: 20040227
  Transmission Date: 20041129
  Serious: No
  Sender: FDA-Public Use
  Company Number: A01200400928

PATIENT
  Age: 53 Year
  Sex: Female

DRUGS (4)
  1. PLAQUENIL [Suspect]
     Dosage: 200 MG,  ORAL
     Route: 048
     Dates: start: 20031127, end: 20031205
  2. METHOTREXATE [Suspect]
     Indication: RHEUMATOID ARTHRITIS
  3. CYCLOSPORINE [Suspect]
     Indication: RHEUMATOID ARTHRITIS
     Dates: start: 20020731
  4. PREDNISOLONE [Concomitant]

REACTIONS (3)
  - ENTHESOPATHY [None]
  - MYALGIA [None]
  - MYOSITIS [None]
